FAERS Safety Report 8257126-4 (Version None)
Quarter: 2012Q1

REPORT INFORMATION
  Report Type: 
  Country: None (occurrence: None)
  Receive Date: 20120330
  Receipt Date: 20120330
  Transmission Date: 20120608
  Serious: No
  Sender: FDA-Public Use
  Company Number: None

PATIENT
  Sex: Female
  Weight: 61.2356 kg

DRUGS (1)
  1. ATORVASTATIN [Suspect]
     Indication: BLOOD CHOLESTEROL INCREASED
     Dosage: 10 MGM Q.D.
     Dates: start: 20111222, end: 20120223

REACTIONS (5)
  - MUSCULAR WEAKNESS [None]
  - NIGHTMARE [None]
  - TREMOR [None]
  - TINNITUS [None]
  - INSOMNIA [None]
